FAERS Safety Report 7645911-9 (Version None)
Quarter: 2011Q3

REPORT INFORMATION
  Report Type: 
  Country: None (occurrence: None)
  Receive Date: 20110729
  Receipt Date: 20110720
  Transmission Date: 20111222
  Serious: Yes (Other)
  Sender: FDA-Public Use
  Company Number: US-ASTRAZENECA-2011SE43829

PATIENT
  Sex: Female

DRUGS (15)
  1. VASOTEC [Concomitant]
     Route: 048
  2. PLAVIX [Concomitant]
     Route: 048
  3. NEURONTIN [Concomitant]
     Route: 048
  4. ZANAFLEX [Concomitant]
     Dosage: ONE TABLET EVERY 6 TO 8 HOURS PM, NOT MORE THAN 3 DOSES IN 24 HOURS
     Route: 048
  5. LORTAB [Concomitant]
     Indication: PAIN
     Dosage: 7.5MG+500MG QID AND AS NEEDED
     Route: 048
  6. FENOFIBRATE [Concomitant]
     Dosage: 1 CAPSULE DAILY WITH MEALS
     Route: 048
  7. ZOLPIDEM TARTRATE [Concomitant]
     Indication: SLEEP DISORDER
     Dosage: 1 TABLET AT BEDTIME AS NEEDED
     Route: 048
  8. ESTRACE [Concomitant]
     Route: 048
  9. COUMADIN [Concomitant]
     Route: 048
  10. VYTORIN [Concomitant]
     Indication: BLOOD CHOLESTEROL ABNORMAL
     Dosage: 10MG+20MG ONE TABLET DAILY
     Route: 048
  11. TRILIPIX [Concomitant]
     Route: 048
  12. NEXIUM [Suspect]
     Route: 048
  13. ZOLOFT [Concomitant]
     Route: 048
  14. LOPRESSOR [Concomitant]
     Route: 048
  15. ASPIRIN [Concomitant]
     Route: 048

REACTIONS (5)
  - BACK PAIN [None]
  - GASTRIC ULCER HAEMORRHAGE [None]
  - CORONARY ARTERY DISEASE [None]
  - ESSENTIAL HYPERTENSION [None]
  - ANAEMIA [None]
